FAERS Safety Report 12199115 (Version 1)
Quarter: 2016Q1

REPORT INFORMATION
  Report Type: Spontaneous
  Country: US (occurrence: CA)
  Receive Date: 20160322
  Receipt Date: 20160322
  Transmission Date: 20160526
  Serious: Yes (Death, Other)
  Sender: FDA-Public Use
  Company Number: CA-HOSPIRA-3217748

PATIENT
  Age: 36 Year
  Sex: Female

DRUGS (1)
  1. ROCURONIUM BROMIDE. [Suspect]
     Active Substance: ROCURONIUM BROMIDE
     Indication: PRODUCT USED FOR UNKNOWN INDICATION
     Dates: start: 201508, end: 201508

REACTIONS (4)
  - Paralysis [Fatal]
  - Drug abuse [Fatal]
  - Wrong drug administered [Fatal]
  - Respiratory arrest [Fatal]

NARRATIVE: CASE EVENT DATE: 201508
